FAERS Safety Report 4453820-1 (Version None)
Quarter: 2004Q3

REPORT INFORMATION
  Report Type: 
  Country: None (occurrence: None)
  Receive Date: 20040920
  Receipt Date: 20020925
  Transmission Date: 20050211
  Serious: Yes (Life-Threatening, Hospitalization)
  Sender: FDA-Public Use
  Company Number: AU-ROCHE-321985

PATIENT
  Age: 18 Year
  Sex: Male
  Weight: 94 kg

DRUGS (1)
  1. ROACCUTANE [Suspect]
     Indication: ACNE
     Dosage: REPORTED AS LONG TERM TREATMENT.
     Route: 065
     Dates: start: 19991001

REACTIONS (4)
  - DEPRESSION [None]
  - PSYCHOTIC DISORDER [None]
  - SUICIDAL IDEATION [None]
  - SUICIDE ATTEMPT [None]
